FAERS Safety Report 4363638-6 (Version None)
Quarter: 2004Q2

REPORT INFORMATION
  Report Type: 
  Country: None (occurrence: None)
  Receive Date: 20040524
  Receipt Date: 20040524
  Transmission Date: 20050107
  Serious: Yes (Death)
  Sender: FDA-Public Use
  Company Number: None

PATIENT
  Age: 3 Month
  Sex: Female

DRUGS (1)
  1. CITALOPRAM [Suspect]
     Indication: DEPRESSION
     Dosage: 60MG DAILY ORAL
     Route: 048
     Dates: start: 20020415, end: 20040521

REACTIONS (14)
  - ABNORMAL BEHAVIOUR [None]
  - BRAIN DAMAGE [None]
  - DRUG EXPOSURE DURING PREGNANCY [None]
  - DRUG EXPOSURE VIA BREAST MILK [None]
  - DRUG WITHDRAWAL SYNDROME [None]
  - EYE REDNESS [None]
  - EYE ROLLING [None]
  - FEELING COLD [None]
  - HYPOTONIA [None]
  - MOVEMENT DISORDER [None]
  - SCREAMING [None]
  - SEDATION [None]
  - SOMNOLENCE [None]
  - STARING [None]
